FAERS Safety Report 15418476 (Version 1)
Quarter: 2018Q3

REPORT INFORMATION
  Report Type: Spontaneous
  Country: US (occurrence: US)
  Receive Date: 20180924
  Receipt Date: 20180924
  Transmission Date: 20181010
  Serious: No
  Sender: FDA-Public Use
  Company Number: US-SA-2018SA256028

PATIENT
  Age: 52 Year
  Sex: Male

DRUGS (1)
  1. LANTUS [Suspect]
     Active Substance: INSULIN GLARGINE
     Dosage: 25 U, QD
     Route: 065

REACTIONS (4)
  - Blood glucose increased [Unknown]
  - Drug dose omission [Unknown]
  - Dizziness [Unknown]
  - Device operational issue [Unknown]
